FAERS Safety Report 4886635-0 (Version None)
Quarter: 2006Q1

REPORT INFORMATION
  Report Type: 
  Country: None (occurrence: None)
  Receive Date: 20060119
  Receipt Date: 20060112
  Transmission Date: 20060701
  Serious: Yes (Disabling, Other)
  Sender: FDA-Public Use
  Company Number: 2005-04591

PATIENT
  Age: 7 Year
  Sex: Female
  Weight: 30 kg

DRUGS (1)
  1. TRELSTAR DEPOT [Suspect]
     Indication: PRECOCIOUS PUBERTY
     Dosage: 3 MG/28 DAYS, INTRAMUSCULAR
     Route: 030
     Dates: start: 20030709, end: 20041201

REACTIONS (3)
  - HAEMATURIA [None]
  - SYSTEMIC LUPUS ERYTHEMATOSUS [None]
  - URTICARIA GENERALISED [None]
